FAERS Safety Report 7746878-5 (Version None)
Quarter: 2011Q3

REPORT INFORMATION
  Report Type: 
  Country: None (occurrence: None)
  Receive Date: 20110913
  Receipt Date: 20110831
  Transmission Date: 20111222
  Serious: No
  Sender: FDA-Public Use
  Company Number: US-B.I. PHARMACEUTICALS,INC./RIDGEFIELD-2011-BP-21293BP

PATIENT
  Age: 71 Year
  Sex: Female

DRUGS (4)
  1. PRADAXA [Suspect]
     Indication: ATRIAL FIBRILLATION
     Dosage: 300 MG
     Route: 048
     Dates: start: 20110801
  2. NORVASC [Concomitant]
     Indication: HYPERTENSION
     Route: 048
  3. HYDROCODONE [Concomitant]
     Indication: HEADACHE
     Dosage: 5 MG
     Route: 048
  4. QUINAPRIL HCL [Concomitant]
     Indication: HYPERTENSION
     Dosage: 5 MG
     Route: 048

REACTIONS (5)
  - FLATULENCE [None]
  - DEFAECATION URGENCY [None]
  - ERUCTATION [None]
  - DIARRHOEA [None]
  - CHOKING SENSATION [None]
